FAERS Safety Report 8501019-1 (Version None)
Quarter: 2012Q2

REPORT INFORMATION
  Report Type: 
  Country: None (occurrence: None)
  Receive Date: 20120405
  Receipt Date: 20100216
  Transmission Date: 20120825
  Serious: Yes (Other)
  Sender: FDA-Public Use
  Company Number: PHEH2010US02516

PATIENT
  Age: 65 Year
  Sex: Female
  Weight: 79.8 kg

DRUGS (10)
  1. RELAFEN [Concomitant]
  2. CETIRIZINE HYDROCHLORIDE [Concomitant]
  3. PROTONIX [Concomitant]
  4. CONJUGATED ESTROGENS [Concomitant]
  5. PROZAC [Concomitant]
  6. ESTRACE [Concomitant]
  7. RECLAST [Suspect]
     Indication: OSTEOPENIA
     Dosage: 5MG/100 ML, INFUSION
     Dates: start: 20100108, end: 20100108
  8. FIORICET [Concomitant]
  9. DICLOFENAC SODIUM [Concomitant]
  10. VITAMIN B12 [Concomitant]

REACTIONS (5)
  - JOINT SWELLING [None]
  - NAUSEA [None]
  - ARTHRALGIA [None]
  - BACK PAIN [None]
  - BLOOD PRESSURE INCREASED [None]
